FAERS Safety Report 9989577 (Version 2)
Quarter: 2013Q4

REPORT INFORMATION
  Report Type: Spontaneous
  Country: US (occurrence: None)
  Receive Date: 20131105
  Receipt Date: 20131122
  Transmission Date: 20140711
  Serious: Yes (Hospitalization, Other)
  Sender: FDA-Public Use
  Company Number: US-ZYDUS-000605

PATIENT
  Age: 19 Year
  Sex: Male

DRUGS (5)
  1. CITALOPRAM [Suspect]
  2. LAMOTRIGINE (LAMOTRIGINE) [Suspect]
  3. LORAZEPAM (LORAZEPAM) [Concomitant]
  4. ARIPIPRAZOLE (ARIPIPRAZOLE) [Concomitant]
  5. LAMOTRIGINE (LAMOTRIGINE) [Concomitant]

REACTIONS (7)
  - Ventricular tachycardia [None]
  - Overdose [None]
  - Mental status changes [None]
  - Serotonin syndrome [None]
  - Pyrexia [None]
  - Intentional overdose [None]
  - Unresponsive to stimuli [None]
